FAERS Safety Report 4701307-0 (Version None)
Quarter: 2005Q2

REPORT INFORMATION
  Report Type: 
  Country: None (occurrence: None)
  Receive Date: 20050628
  Receipt Date: 20050617
  Transmission Date: 20051028
  Serious: Yes (Other)
  Sender: FDA-Public Use
  Company Number: PHBS2005PE08879

PATIENT
  Sex: Male

DRUGS (2)
  1. TRILEPTAL [Suspect]
     Dosage: 300 MG, BID
     Route: 048
  2. TRILEPTAL [Suspect]
     Dosage: 300 MG/D
     Route: 048

REACTIONS (2)
  - HEPATIC CIRRHOSIS [None]
  - LIVER DISORDER [None]
